FAERS Safety Report 6414610-3 (Version None)
Quarter: 2009Q4

REPORT INFORMATION
  Report Type: 
  Country: None (occurrence: None)
  Receive Date: 20091026
  Receipt Date: 20091022
  Transmission Date: 20100525
  Serious: Yes (Death, Life-Threatening, Hospitalization, Other)
  Sender: FDA-Public Use
  Company Number: JP-ABBOTT-09P-087-0581247-00

PATIENT
  Sex: Male

DRUGS (12)
  1. HUMIRA [Suspect]
     Indication: RHEUMATOID ARTHRITIS
     Route: 058
     Dates: start: 20081028
  2. HUMIRA [Suspect]
     Dates: start: 20090601, end: 20090615
  3. TACROLIMUS [Concomitant]
     Indication: RHEUMATOID ARTHRITIS
     Route: 048
     Dates: start: 20080314, end: 20090304
  4. TACROLIMUS [Concomitant]
     Route: 048
     Dates: start: 20090305
  5. PREDNISOLONE [Concomitant]
     Indication: RHEUMATOID ARTHRITIS
     Route: 048
     Dates: start: 20080411, end: 20081010
  6. PREDNISOLONE [Concomitant]
     Route: 048
     Dates: start: 20081101, end: 20081104
  7. PREDNISOLONE [Concomitant]
     Route: 048
     Dates: start: 20081105
  8. DICLOFENAC [Concomitant]
     Indication: RHEUMATOID ARTHRITIS
     Route: 048
  9. SULFAMETHOXAZOLE AND TRIMETHOPRIM [Concomitant]
     Indication: PROPHYLAXIS
     Dates: start: 20081101, end: 20081103
  10. SULFAMETHOXAZOLE AND TRIMETHOPRIM [Concomitant]
     Indication: PNEUMOCYSTIS JIROVECI PNEUMONIA
     Dates: start: 20081104
  11. FAMOTIDINE [Concomitant]
     Indication: GASTROENTERITIS
     Route: 048
  12. FAMOTIDINE [Concomitant]
     Indication: PROPHYLAXIS

REACTIONS (3)
  - PNEUMONIA [None]
  - RENAL IMPAIRMENT [None]
  - TENDON RUPTURE [None]
